FAERS Safety Report 16248897 (Version 1)
Quarter: 2019Q2

REPORT INFORMATION
  Report Type: Spontaneous
  Country: US (occurrence: US)
  Receive Date: 20190429
  Receipt Date: 20190429
  Transmission Date: 20190711
  Serious: No
  Sender: FDA-Public Use
  Company Number: US-AMGEN-USASP2019064748

PATIENT
  Age: 70 Year
  Sex: Male

DRUGS (21)
  1. IRON [Concomitant]
     Active Substance: IRON
     Indication: VITAMIN SUPPLEMENTATION
     Dosage: UNK,  1 TABLET QD
  2. PLAVIX [Concomitant]
     Active Substance: CLOPIDOGREL BISULFATE
     Indication: CORONARY ARTERY OCCLUSION
     Dosage: 75 MILLIGRAM, QD
     Dates: start: 2013
  3. STOOL SOFTENER (DOCUSATE) [Concomitant]
     Active Substance: DOCUSATE
     Indication: FAECES HARD
  4. GLUCOSAMINE [Concomitant]
     Active Substance: GLUCOSAMINE
     Indication: VITAMIN SUPPLEMENTATION
     Dosage: 1500 MILLIGRAM, QD
  5. GINGER ROOT [Concomitant]
     Active Substance: GINGER
     Indication: VITAMIN SUPPLEMENTATION
     Dosage: 500 MILLIGRAM, QD
  6. METFORMIN [Concomitant]
     Active Substance: METFORMIN HYDROCHLORIDE
     Indication: DIABETES MELLITUS
     Dosage: 500 MILLIGRAM, QD
  7. CHONDROITIN [Concomitant]
     Active Substance: CHONDROITIN
     Indication: VITAMIN SUPPLEMENTATION
     Dosage: 500 MILLIGRAM, QD
  8. COENZYME Q10 [Concomitant]
     Active Substance: UBIDECARENONE
     Indication: VITAMIN SUPPLEMENTATION
     Dosage: 100 MILLIGRAM, QD
  9. JANUVIA [Concomitant]
     Active Substance: SITAGLIPTIN PHOSPHATE
     Indication: DIABETES MELLITUS
     Dosage: 100 MILLIGRAM, QD
     Dates: start: 2015
  10. FISH OIL [Concomitant]
     Active Substance: FISH OIL
     Indication: VITAMIN SUPPLEMENTATION
     Dosage: 100 MILLIGRAM, BID
  11. FLAXSEED [Concomitant]
     Active Substance: FLAX SEED
     Indication: VITAMIN SUPPLEMENTATION
     Dosage: 1300 MILLIGRAM, QD
  12. TURMERIC [Concomitant]
     Active Substance: HERBALS\TURMERIC
     Indication: VITAMIN SUPPLEMENTATION
     Dosage: UNK, QD
  13. REPATHA [Suspect]
     Active Substance: EVOLOCUMAB
     Indication: LOW DENSITY LIPOPROTEIN INCREASED
     Dosage: 140 MILLIGRAM, Q2WK
     Route: 065
  14. MULTI VITAMIN [Concomitant]
     Active Substance: VITAMINS
     Indication: VITAMIN SUPPLEMENTATION
     Dosage: UNK, QD
  15. MAGNESIUM [Concomitant]
     Active Substance: MAGNESIUM
     Indication: VITAMIN SUPPLEMENTATION
     Dosage: 250 MILLIGRAM, QD
  16. CHROMIUM [Concomitant]
     Active Substance: CHROMIC CHLORIDE\CHROMIUM
     Indication: VITAMIN SUPPLEMENTATION
     Dosage: UNK, QD
  17. GLYBURIDE. [Concomitant]
     Active Substance: GLYBURIDE
     Indication: DIABETES MELLITUS
     Dosage: 5 MILLIGRAM, 1 TO 2 QD
     Dates: start: 2009
  18. RAMIPRIL. [Concomitant]
     Active Substance: RAMIPRIL
     Indication: HYPERTENSION
     Dosage: 5 MILLIGRAM, QD
  19. NIACIN. [Concomitant]
     Active Substance: NIACIN
     Indication: VITAMIN SUPPLEMENTATION
     Dosage: 500 MILLIGRAM, QD
  20. B COMPLEX WITH VITAMIN C [Concomitant]
     Indication: VITAMIN SUPPLEMENTATION
     Dosage: UNK, QD
  21. VITAMIN C [Concomitant]
     Active Substance: ASCORBIC ACID
     Indication: VITAMIN SUPPLEMENTATION
     Dosage: UNK, QD

REACTIONS (2)
  - Dyspnoea [Recovered/Resolved]
  - Oxygen saturation decreased [Recovered/Resolved]

NARRATIVE: CASE EVENT DATE: 20190419
